FAERS Safety Report 18018109 (Version 2)
Quarter: 2020Q3

REPORT INFORMATION
  Report Type: Spontaneous
  Country: FR (occurrence: FR)
  Receive Date: 20200713
  Receipt Date: 20200731
  Transmission Date: 20201103
  Serious: Yes (Hospitalization, Other)
  Sender: FDA-Public Use
  Company Number: FR-AUROBINDO-AUR-APL-2020-033824

PATIENT
  Age: 87 Year
  Sex: Female
  Weight: 48 kg

DRUGS (3)
  1. GENTAMICINE PANPHARMA [Interacting]
     Active Substance: GENTAMICIN
     Indication: ENDOCARDITIS
     Dosage: 160 MILLIGRAM, ONCE A DAY
     Route: 041
     Dates: start: 20200531
  2. AMOXICILLINE PANPHARMA [Interacting]
     Active Substance: AMOXICILLIN
     Indication: ENDOCARDITIS
     Dosage: 12 GRAM, ONCE A DAY (AVEC VARIATIONS DE POSOLOGIES SUITE AU SURDOSAGE)
     Route: 041
     Dates: start: 20200530, end: 20200616
  3. FUROSEMIDE ARROW [Suspect]
     Active Substance: FUROSEMIDE
     Indication: HYPOVOLAEMIA
     Dosage: 20 MILLIGRAM, ONCE A DAY (ADAPTATION POSOLOGIQUE SELON VALEURS DE LA CR?ATININE)
     Route: 048
     Dates: start: 20200531

REACTIONS (2)
  - Drug interaction [Recovered/Resolved]
  - Acute kidney injury [Recovering/Resolving]

NARRATIVE: CASE EVENT DATE: 20200531
